FAERS Safety Report 20602752 (Version 1)
Quarter: 2022Q1

REPORT INFORMATION
  Report Type: Spontaneous
  Country: EG (occurrence: EG)
  Receive Date: 20220316
  Receipt Date: 20220316
  Transmission Date: 20220423
  Serious: Yes (Hospitalization)
  Sender: FDA-Public Use
  Company Number: EG-PFIZER INC-202200400369

PATIENT
  Age: 63 Year
  Sex: Male

DRUGS (1)
  1. SUTENT [Suspect]
     Active Substance: SUNITINIB MALATE
     Indication: Metastatic renal cell carcinoma
     Dosage: 1 DF, CYCLIC (1 CAPSULE DAILY FOR 4 WEEKS ON AND 2 WEEKS OFF)
     Dates: start: 20210815, end: 20220309

REACTIONS (2)
  - Hypotension [Unknown]
  - Neoplasm progression [Unknown]
